FAERS Safety Report 24216590 (Version 2)
Quarter: 2024Q3

REPORT INFORMATION
  Report Type: Spontaneous
  Country: BE (occurrence: None)
  Receive Date: 20240816
  Receipt Date: 20240821
  Transmission Date: 20241017
  Serious: Yes (Death, Hospitalization)
  Sender: ASTRAZENECA
  Company Number: 2024A180315

PATIENT
  Age: 85 Year
  Sex: Male

DRUGS (8)
  1. FARXIGA [Suspect]
     Active Substance: DAPAGLIFLOZIN PROPANEDIOL
     Indication: Cardiac failure
     Dosage: 10 MILLIGRAM10.0MG UNKNOWN
     Route: 048
     Dates: start: 20231006, end: 20240618
  2. EDOXABAN TOSYLATE [Suspect]
     Active Substance: EDOXABAN TOSYLATE
     Indication: Thrombosis
     Dosage: 30 MILLIGRAM30.0MG UNKNOWN
     Route: 048
     Dates: start: 20240621
  3. TAMSULOSIN [Suspect]
     Active Substance: TAMSULOSIN
     Indication: Hypertrophy
     Dosage: 0.4 MILLIGRAM, QD
     Route: 046
  4. BUMETANIDE [Suspect]
     Active Substance: BUMETANIDE
     Indication: Cardiac failure
     Dosage: 1 MILLIGRAM1.0MG UNKNOWN
     Dates: start: 20230927
  5. PANTOMED [Concomitant]
     Indication: Product used for unknown indication
  6. BISOPROLOL [Concomitant]
     Active Substance: BISOPROLOL\BISOPROLOL FUMARATE
     Indication: Product used for unknown indication
     Dates: start: 20230426
  7. CORDARONE [Concomitant]
     Active Substance: AMIODARONE HYDROCHLORIDE
     Indication: Product used for unknown indication
     Dates: start: 20230309
  8. SIMVASTATIN [Concomitant]
     Active Substance: SIMVASTATIN
     Indication: Product used for unknown indication

REACTIONS (7)
  - Dehydration [Fatal]
  - Pneumonia [Fatal]
  - Cardiac failure acute [Fatal]
  - C-reactive protein increased [Fatal]
  - Ventricular arrhythmia [Fatal]
  - Cardiac failure [Fatal]
  - Pleural effusion [Fatal]

NARRATIVE: CASE EVENT DATE: 20231231
